FAERS Safety Report 4802982-2 (Version None)
Quarter: 2005Q4

REPORT INFORMATION
  Report Type: 
  Country: None (occurrence: None)
  Receive Date: 20051013
  Receipt Date: 20050923
  Transmission Date: 20060501
  Serious: Yes (Life-Threatening, Hospitalization)
  Sender: FDA-Public Use
  Company Number: DE_050917042

PATIENT
  Age: 55 Year
  Sex: Male

DRUGS (1)
  1. ALIMTA [Suspect]
     Indication: PLEURAL MESOTHELIOMA MALIGNANT

REACTIONS (2)
  - ATRIAL FLUTTER [None]
  - SUPRAVENTRICULAR EXTRASYSTOLES [None]
